FAERS Safety Report 15577083 (Version 1)
Quarter: 2018Q4

REPORT INFORMATION
  Report Type: Spontaneous
  Country: CA (occurrence: CA)
  Receive Date: 20181101
  Receipt Date: 20181101
  Transmission Date: 20190205
  Serious: Yes (Other)
  Sender: FDA-Public Use
  Company Number: CA-BAXTER-2018BAX027167

PATIENT
  Age: 54 Year
  Sex: Male

DRUGS (1)
  1. BUPIVACAINE IN 8.25% DEXTROSE INJECTION USP [Suspect]
     Active Substance: BUPIVACAINE\DEXTROSE
     Indication: SPINAL ANAESTHESIA
     Route: 037
     Dates: start: 20181011

REACTIONS (1)
  - Drug ineffective [Unknown]

NARRATIVE: CASE EVENT DATE: 20181011
